FAERS Safety Report 4779127-0 (Version None)
Quarter: 2005Q3

REPORT INFORMATION
  Report Type: 
  Country: None (occurrence: None)
  Receive Date: 20050926
  Receipt Date: 20041002
  Transmission Date: 20060218
  Serious: Yes (Death, Hospitalization)
  Sender: FDA-Public Use
  Company Number: AU-MERCK-0410AUS00032

PATIENT
  Age: 77 Year
  Sex: Male

DRUGS (13)
  1. DOCUSATE SODIUM AND SENNA [Concomitant]
     Route: 065
  2. VIOXX [Suspect]
     Indication: RHEUMATOID ARTHRITIS
     Route: 048
     Dates: start: 20021212, end: 20040201
  3. VIOXX [Suspect]
     Indication: OSTEOARTHRITIS
     Route: 048
     Dates: start: 20021212, end: 20040201
  4. RANITIDINE HYDROCHLORIDE [Concomitant]
     Route: 065
     Dates: start: 19930716, end: 20040415
  5. CALCIUM CARBONATE [Concomitant]
     Route: 048
     Dates: start: 19951213, end: 20040415
  6. [COMPOSITION UNSPECIFIED] [Concomitant]
     Route: 065
  7. CELECOXIB [Concomitant]
     Route: 065
     Dates: start: 20040201
  8. MORPHINE SULFATE [Concomitant]
     Route: 065
  9. MORPHINE [Concomitant]
     Route: 065
  10. FOSAMAX [Concomitant]
     Route: 048
  11. LACTULOSE [Concomitant]
     Route: 065
  12. RANITIDINE [Concomitant]
     Route: 065
  13. SODIUM CHLORIDE [Concomitant]
     Route: 065

REACTIONS (7)
  - ACUTE MYOCARDIAL INFARCTION [None]
  - CONFUSIONAL STATE [None]
  - FALL [None]
  - HYPONATRAEMIA [None]
  - INCONTINENCE [None]
  - MEMORY IMPAIRMENT [None]
  - URINARY TRACT INFECTION [None]
